FAERS Safety Report 7150465-X (Version None)
Quarter: 2010Q4

REPORT INFORMATION
  Report Type: 
  Country: None (occurrence: None)
  Receive Date: 20101210
  Receipt Date: 20101206
  Transmission Date: 20110411
  Serious: Yes (Other)
  Sender: FDA-Public Use
  Company Number: PHHY2010US81712

PATIENT
  Sex: Female

DRUGS (6)
  1. GILENYA [Suspect]
     Indication: MULTIPLE SCLEROSIS
     Dosage: 0.5 MG, QD
     Route: 048
     Dates: start: 20101124, end: 20101130
  2. AMBIEN CR [Concomitant]
     Indication: INSOMNIA
     Route: 048
  3. HYDROCODONE [Concomitant]
     Indication: PAIN
     Route: 048
  4. FLEXERIL [Concomitant]
     Indication: MUSCLE SPASMS
  5. ULTRAM [Concomitant]
     Indication: PAIN
     Dosage: UNK
  6. FIORICET [Concomitant]
     Indication: HEADACHE

REACTIONS (4)
  - CHEST DISCOMFORT [None]
  - CONFUSIONAL STATE [None]
  - LETHARGY [None]
  - PAIN IN EXTREMITY [None]
